FAERS Safety Report 8145393-7 (Version None)
Quarter: 2012Q1

REPORT INFORMATION
  Report Type: 
  Country: None (occurrence: None)
  Receive Date: 20120217
  Receipt Date: 20120209
  Transmission Date: 20120608
  Serious: Yes (Hospitalization)
  Sender: FDA-Public Use
  Company Number: US-JNJFOC-20111012221

PATIENT
  Sex: Female
  Weight: 36.6 kg

DRUGS (21)
  1. NALBUPHINE [Concomitant]
  2. BISACODYL [Concomitant]
  3. INFLIXIMAB, RECOMBINANT [Suspect]
     Indication: INFLAMMATORY BOWEL DISEASE
     Route: 042
     Dates: start: 20080205, end: 20090114
  4. METHOTREXATE [Suspect]
     Indication: PRODUCT USED FOR UNKNOWN INDICATION
  5. ANTIBIOTICS [Concomitant]
     Indication: INFLAMMATORY BOWEL DISEASE
  6. RANITIDINE [Concomitant]
  7. KETOROLAC TROMETHAMINE [Concomitant]
  8. ONDANSETRON [Concomitant]
  9. MORPHINE [Concomitant]
  10. CEFTRIAXONE [Concomitant]
  11. LORAZEPAM [Concomitant]
  12. A MULTIVITAMIN [Concomitant]
  13. HUMIRA [Suspect]
     Indication: PRODUCT USED FOR UNKNOWN INDICATION
     Dates: start: 20090218, end: 20111001
  14. PREDNISONE [Suspect]
     Indication: PRODUCT USED FOR UNKNOWN INDICATION
  15. CHOLECALCIFEROL [Concomitant]
  16. FISH OIL [Concomitant]
  17. ACETAMINOPHEN [Concomitant]
  18. HYDROCORTISONE [Suspect]
     Indication: PRODUCT USED FOR UNKNOWN INDICATION
  19. PEPTAMEN [Concomitant]
  20. FOLIC ACID [Concomitant]
  21. PREVACID [Concomitant]

REACTIONS (11)
  - VOMITING [None]
  - ABDOMINAL DISTENSION [None]
  - ANASTOMOTIC LEAK [None]
  - COLONIC STENOSIS [None]
  - ILEAL STENOSIS [None]
  - INTESTINAL STENOSIS [None]
  - LIPASE INCREASED [None]
  - DRUG INEFFECTIVE [None]
  - RECTAL STENOSIS [None]
  - HYPOPHAGIA [None]
  - PLEURAL EFFUSION [None]
